FAERS Safety Report 7733186-1 (Version None)
Quarter: 2011Q3

REPORT INFORMATION
  Report Type: 
  Country: None (occurrence: None)
  Receive Date: 20110907
  Receipt Date: 20110826
  Transmission Date: 20111222
  Serious: Yes (Other)
  Sender: FDA-Public Use
  Company Number: US-ASTELLAS-2011US005392

PATIENT

DRUGS (6)
  1. PROGRAF [Suspect]
     Indication: RENAL TRANSPLANT
     Dosage: 3 MG AM, 2 MG PM
     Route: 048
     Dates: start: 19990601
  2. EPIVIR-HBV [Concomitant]
     Indication: HEPATITIS
     Dosage: 100 MG, UID/QD
     Route: 048
     Dates: start: 19970101
  3. ALPHAGAN [Concomitant]
     Indication: GLAUCOMA
     Dosage: 3 DROPS RIGHT EYE, UID/QD
     Route: 047
     Dates: start: 19950101
  4. VIREAD [Concomitant]
     Indication: HEPATITIS
     Dosage: 300 MG, QOD
     Route: 048
     Dates: start: 19970101
  5. COSOPT [Concomitant]
     Indication: GLAUCOMA
     Dosage: 2 DROPS RIGHT EYE, UID/QD
     Route: 047
     Dates: start: 19950101
  6. CELLCEPT [Concomitant]
     Indication: RENAL TRANSPLANT
     Dosage: 500 MG, BID
     Route: 048
     Dates: start: 19990601

REACTIONS (2)
  - TRANSPLANT FAILURE [None]
  - LIVER TRANSPLANT [None]
